FAERS Safety Report 5876286-3 (Version None)
Quarter: 2008Q3

REPORT INFORMATION
  Report Type: 
  Country: None (occurrence: None)
  Receive Date: 20080910
  Receipt Date: 20080829
  Transmission Date: 20090109
  Serious: Yes (Other)
  Sender: FDA-Public Use
  Company Number: FR-GENENTECH-267526

PATIENT
  Age: 35 Year
  Sex: Female

DRUGS (1)
  1. HERCEPTIN [Suspect]
     Indication: RENAL CANCER
     Dosage: UNK

REACTIONS (1)
  - CARDIAC DISORDER [None]
